FAERS Safety Report 18453303 (Version 8)
Quarter: 2021Q4

REPORT INFORMATION
  Report Type: Report from Study
  Country: JP (occurrence: JP)
  Receive Date: 20201102
  Receipt Date: 20211220
  Transmission Date: 20220303
  Serious: Yes (Hospitalization)
  Sender: FDA-Public Use
  Company Number: JP-EISAI-202006368_HOPE-IIS_C_1

PATIENT
  Age: 53 Year
  Sex: Female
  Weight: 57 kg

DRUGS (19)
  1. LENVATINIB [Suspect]
     Active Substance: LENVATINIB
     Indication: Bile duct cancer
     Route: 048
     Dates: start: 20201006, end: 20201016
  2. LENVATINIB [Suspect]
     Active Substance: LENVATINIB
     Dates: start: 20201020, end: 20201024
  3. NIVOLUMAB [Suspect]
     Active Substance: NIVOLUMAB
     Indication: Bile duct cancer
     Route: 041
     Dates: start: 20201006, end: 20201020
  4. BILASTINE [Concomitant]
     Active Substance: BILASTINE
     Indication: Prophylaxis
  5. URSO [Concomitant]
     Active Substance: URSODIOL
     Indication: Anomalous arrangement of pancreaticobiliary duct
  6. LANSOPRAZOLE [Concomitant]
     Active Substance: LANSOPRAZOLE
     Indication: Prophylaxis
  7. PANCRELIPASE [Concomitant]
     Active Substance: PANCRELIPASE
     Indication: Anomalous arrangement of pancreaticobiliary duct
  8. CALONAL [Concomitant]
     Active Substance: ACETAMINOPHEN
     Indication: Pyrexia
     Route: 048
     Dates: start: 20201020
  9. CANDESARTAN [Concomitant]
     Active Substance: CANDESARTAN
     Indication: Hypertension
     Dates: start: 20201006, end: 20201023
  10. CANDESARTAN [Concomitant]
     Active Substance: CANDESARTAN
     Dates: start: 20201030
  11. AMLODIPINE [Concomitant]
     Active Substance: AMLODIPINE BESYLATE
     Indication: Hypertension
     Route: 048
     Dates: start: 20201014, end: 20201023
  12. BETAMETHASONE DIPROPIONATE [Concomitant]
     Active Substance: BETAMETHASONE DIPROPIONATE
     Indication: Prophylaxis
  13. GLYCOSAMINOGLYCANS [Concomitant]
     Active Substance: GLYCOSAMINOGLYCANS
     Indication: Prophylaxis
     Route: 062
  14. NATEGLINIDE [Concomitant]
     Active Substance: NATEGLINIDE
     Indication: Hyperglycaemia
     Route: 048
     Dates: start: 20201029
  15. PREDNISOLONE [Concomitant]
     Active Substance: PREDNISOLONE
     Indication: Erythema multiforme
     Route: 048
     Dates: start: 20201106
  16. SULFAMETHOXAZOLE\TRIMETHOPRIM [Concomitant]
     Active Substance: SULFAMETHOXAZOLE\TRIMETHOPRIM
     Indication: Infection prophylaxis
     Route: 048
     Dates: start: 20201030
  17. BROTIZOLAM [Concomitant]
     Active Substance: BROTIZOLAM
     Indication: Insomnia
     Route: 048
     Dates: start: 20201116
  18. MAGNESIUM OXIDE [Concomitant]
     Active Substance: MAGNESIUM OXIDE
     Indication: Constipation
     Route: 048
     Dates: start: 20201029
  19. SENNOSIDES [Concomitant]
     Active Substance: SENNOSIDES
     Indication: Constipation
     Route: 048
     Dates: start: 20201029

REACTIONS (2)
  - Erythema multiforme [Recovered/Resolved]
  - Pulmonary embolism [Recovering/Resolving]

NARRATIVE: CASE EVENT DATE: 20201020
